FAERS Safety Report 4839471-5 (Version None)
Quarter: 2005Q4

REPORT INFORMATION
  Report Type: 
  Country: None (occurrence: None)
  Receive Date: 20051129
  Receipt Date: 20051116
  Transmission Date: 20060501
  Serious: Yes (Other)
  Sender: FDA-Public Use
  Company Number: CA-GLAXOSMITHKLINE-A0582918A

PATIENT
  Age: 44 Year
  Sex: Female

DRUGS (1)
  1. NICORETTE (MINT) [Suspect]

REACTIONS (1)
  - DEPENDENCE [None]
